FAERS Safety Report 24240057 (Version 3)
Quarter: 2024Q4

REPORT INFORMATION
  Report Type: Spontaneous
  Country: PT (occurrence: PT)
  Receive Date: 20240822
  Receipt Date: 20241004
  Transmission Date: 20250115
  Serious: Yes (Other)
  Sender: TEVA
  Company Number: PT-TEVA-VS-3234778

PATIENT
  Age: 35 Year
  Sex: Male

DRUGS (2)
  1. FLUTICASONE [Interacting]
     Active Substance: FLUTICASONE
     Indication: Asthma
     Dosage: - DOSAGE FORM: NASAL SPRAY / DROPS, INHALED DAILY
     Route: 065
  2. COBICISTAT\DARUNAVIR\EMTRICITABINE\TENOFOVIR ALAFENAMIDE [Interacting]
     Active Substance: COBICISTAT\DARUNAVIR\EMTRICITABINE\TENOFOVIR ALAFENAMIDE
     Indication: HIV infection
     Route: 065

REACTIONS (3)
  - Cushing^s syndrome [Recovering/Resolving]
  - Drug level increased [Recovered/Resolved]
  - Drug interaction [Unknown]
